FAERS Safety Report 5609712-5 (Version None)
Quarter: 2008Q1

REPORT INFORMATION
  Report Type: 
  Country: None (occurrence: None)
  Receive Date: 20080131
  Receipt Date: 20071017
  Transmission Date: 20080703
  Serious: No
  Sender: FDA-Public Use
  Company Number: US-BAYER-200713390BCC

PATIENT
  Age: 41 Year
  Sex: Female
  Weight: 136 kg

DRUGS (7)
  1. ALEVE COLD AND SINUS [Suspect]
     Indication: SINUS CONGESTION
     Dosage: TOTAL DAILY DOSE: 220 MG  UNIT DOSE: 220 MG
     Route: 048
     Dates: start: 20071014, end: 20071016
  2. ALEVE COLD AND SINUS [Suspect]
     Dosage: UNIT DOSE: 220 MG
     Route: 048
     Dates: start: 20071017
  3. HYDROCODONE BITARTRATE [Concomitant]
  4. FLUOXETINE [Concomitant]
  5. CELEBREX [Concomitant]
  6. ULTRIM [Concomitant]
  7. TOPAMAX [Concomitant]

REACTIONS (2)
  - NASOPHARYNGITIS [None]
  - SINUS CONGESTION [None]
